FAERS Safety Report 22621587 (Version 1)
Quarter: 2023Q2

REPORT INFORMATION
  Report Type: Spontaneous
  Country: US (occurrence: US)
  Receive Date: 20230620
  Receipt Date: 20230620
  Transmission Date: 20230722
  Serious: Yes (Hospitalization, Other)
  Sender: FDA-Public Use
  Company Number: US-JUBILANT CADISTA PHARMACEUTICALS-2023JUB00240

PATIENT
  Age: 65 Year
  Sex: Female

DRUGS (2)
  1. METHYLPREDNISOLONE [Suspect]
     Active Substance: METHYLPREDNISOLONE
     Indication: Engraftment syndrome
     Dosage: 1 MG/KG, 1X/DAY, ON DAY + 16
     Dates: start: 2022
  2. POSACONAZOLE [Concomitant]
     Active Substance: POSACONAZOLE
     Indication: Antifungal prophylaxis
     Dosage: 300 MG, ON DAY + 8
     Dates: start: 2022

REACTIONS (7)
  - Staphylococcal infection [Recovering/Resolving]
  - Scedosporium infection [Recovering/Resolving]
  - Delirium [Recovering/Resolving]
  - Paronychia [Recovering/Resolving]
  - Brain abscess [Recovering/Resolving]
  - Osteomyelitis [Recovering/Resolving]
  - Condition aggravated [Recovering/Resolving]

NARRATIVE: CASE EVENT DATE: 20220101
